FAERS Safety Report 5133080-9 (Version None)
Quarter: 2006Q4

REPORT INFORMATION
  Report Type: 
  Country: None (occurrence: None)
  Receive Date: 20061018
  Receipt Date: 20061011
  Transmission Date: 20070319
  Serious: Yes (Other)
  Sender: FDA-Public Use
  Company Number: GXKR2006GB06439

PATIENT
  Age: 58 Year
  Sex: Male
  Weight: 65 kg

DRUGS (4)
  1. ATENOLOL [Suspect]
     Indication: DRESSLER'S SYNDROME
     Dosage: 25 MG, ORAL
     Route: 048
     Dates: start: 20040512, end: 20050701
  2. ASPIRIN [Concomitant]
  3. RAMIPRIL [Concomitant]
  4. SIMVASTATIN [Concomitant]

REACTIONS (7)
  - CONFUSIONAL STATE [None]
  - DIZZINESS [None]
  - DRY EYE [None]
  - DRY MOUTH [None]
  - FATIGUE [None]
  - MUSCLE SPASMS [None]
  - SLEEP DISORDER [None]
